FAERS Safety Report 6840240-5 (Version None)
Quarter: 2010Q3

REPORT INFORMATION
  Report Type: 
  Country: None (occurrence: None)
  Receive Date: 20100714
  Receipt Date: 20100706
  Transmission Date: 20110219
  Serious: Yes (Hospitalization)
  Sender: FDA-Public Use
  Company Number: PHHO2010TH10524

PATIENT
  Sex: Male
  Weight: 44 kg

DRUGS (3)
  1. AFINITOR [Suspect]
     Indication: METASTATIC RENAL CELL CARCINOMA
     Dosage: 10 MG / DAY
     Route: 048
     Dates: start: 20100118, end: 20100703
  2. SENOKOT [Concomitant]
     Indication: CONSTIPATION
  3. MORPHINE [Concomitant]
     Indication: ABDOMINAL DISCOMFORT

REACTIONS (4)
  - DIARRHOEA [None]
  - DYSPNOEA [None]
  - OLIGURIA [None]
  - SOMNOLENCE [None]
